FAERS Safety Report 8066153-1 (Version None)
Quarter: 2012Q1

REPORT INFORMATION
  Report Type: 
  Country: None (occurrence: None)
  Receive Date: 20120124
  Receipt Date: 20110202
  Transmission Date: 20120608
  Serious: No
  Sender: FDA-Public Use
  Company Number: US-BRISTOL-MYERS SQUIBB COMPANY-15511348

PATIENT
  Age: 6 Year
  Sex: Male

DRUGS (1)
  1. ABILIFY [Suspect]
     Dosage: ABILIFY LIQUID 2.5MG (1/2 TEASPOON)

REACTIONS (1)
  - ABNORMAL BEHAVIOUR [None]
